FAERS Safety Report 5061421-X (Version None)
Quarter: 2006Q3

REPORT INFORMATION
  Report Type: 
  Country: None (occurrence: None)
  Receive Date: 20060721
  Receipt Date: 20060711
  Transmission Date: 20061208
  Serious: Yes (Other)
  Sender: FDA-Public Use
  Company Number: CHPA2006US06735

PATIENT
  Sex: Female

DRUGS (1)
  1. 4 WAY FAST ACTING NASAL SPRAY [Suspect]
     Indication: NASAL CONGESTION
     Dosage: 1 SPRAY EACH NOSTRIL, ONCE EVERY NIGHT, NASAL
     Route: 045

REACTIONS (3)
  - DRUG ABUSER [None]
  - DYSPNOEA [None]
  - INSOMNIA [None]
